FAERS Safety Report 18207919 (Version 1)
Quarter: 2020Q3

REPORT INFORMATION
  Report Type: Spontaneous
  Country: AU (occurrence: AU)
  Receive Date: 20200828
  Receipt Date: 20200828
  Transmission Date: 20201103
  Serious: Yes (Other)
  Sender: FDA-Public Use
  Company Number: AU-JNJFOC-20200746694

PATIENT
  Age: 59 Year
  Sex: Female

DRUGS (2)
  1. ADRENALINE                         /00003901/ [Concomitant]
     Active Substance: EPINEPHRINE
     Dosage: ADRENALINE IN 10MLS SODIUM CHLORIDE 0.9%
     Route: 065
  2. FENTANYL. [Suspect]
     Active Substance: FENTANYL
     Indication: PRODUCT USED FOR UNKNOWN INDICATION
     Route: 065

REACTIONS (1)
  - Urticaria [Recovered/Resolved]

NARRATIVE: CASE EVENT DATE: 20200109
